FAERS Safety Report 16077633 (Version 1)
Quarter: 2019Q1

REPORT INFORMATION
  Report Type: Report from Study
  Country: DE (occurrence: DE)
  Receive Date: 20190315
  Receipt Date: 20190315
  Transmission Date: 20190418
  Serious: Yes (Other)
  Sender: FDA-Public Use
  Company Number: DE-ROCHE-2283530

PATIENT

DRUGS (1)
  1. GANCICLOVIR. [Suspect]
     Active Substance: GANCICLOVIR
     Indication: GASTROINTESTINAL ADENOCARCINOMA
     Route: 042

REACTIONS (7)
  - Anaemia [Unknown]
  - Gastritis [Unknown]
  - Tumour pain [Unknown]
  - Gastrointestinal haemorrhage [Unknown]
  - Asthenia [Unknown]
  - Cholestasis [Unknown]
  - Anal haemorrhage [Unknown]
